FAERS Safety Report 6817514-7 (Version None)
Quarter: 2010Q3

REPORT INFORMATION
  Report Type: 
  Country: None (occurrence: None)
  Receive Date: 20100706
  Receipt Date: 20100625
  Transmission Date: 20110219
  Serious: Yes (Hospitalization)
  Sender: FDA-Public Use
  Company Number: B0663034A

PATIENT
  Sex: Male

DRUGS (6)
  1. AVOLVE [Suspect]
     Indication: PRODUCT USED FOR UNKNOWN INDICATION
     Dosage: .5MG PER DAY
     Route: 048
     Dates: start: 20100410
  2. BLOPRESS [Concomitant]
     Dosage: 4MG PER DAY
     Route: 048
  3. HERBESSER R [Concomitant]
     Dosage: 100MG PER DAY
     Route: 048
  4. PLAVIX [Concomitant]
     Dosage: 75MG PER DAY
     Route: 048
  5. LIPITOR [Concomitant]
     Dosage: 5MG PER DAY
     Route: 048
  6. FLIVAS [Concomitant]
     Dosage: 75MG PER DAY
     Route: 048

REACTIONS (1)
  - CHEST PAIN [None]
